FAERS Safety Report 15403259 (Version 1)
Quarter: 2018Q3

REPORT INFORMATION
  Report Type: Spontaneous
  Country: US (occurrence: US)
  Receive Date: 20180919
  Receipt Date: 20180919
  Transmission Date: 20181010
  Serious: No
  Sender: FDA-Public Use
  Company Number: US-LEO PHARMA-313459

PATIENT
  Age: 62 Year
  Sex: Male

DRUGS (3)
  1. PICATO [Suspect]
     Active Substance: INGENOL MEBUTATE
     Indication: SKIN CANCER
     Route: 061
     Dates: start: 20180910, end: 20180912
  2. CALOMEL. [Suspect]
     Active Substance: CALOMEL
     Indication: GLAUCOMA
  3. XALACOM [Suspect]
     Active Substance: LATANOPROST\TIMOLOL MALEATE
     Indication: GLAUCOMA

REACTIONS (6)
  - Application site swelling [Not Recovered/Not Resolved]
  - Eye irritation [Recovered/Resolved]
  - Application site pain [Not Recovered/Not Resolved]
  - Product use in unapproved indication [Unknown]
  - Application site erythema [Not Recovered/Not Resolved]
  - Expired product administered [Unknown]

NARRATIVE: CASE EVENT DATE: 20180910
